FAERS Safety Report 7901728-9 (Version None)
Quarter: 2011Q4

REPORT INFORMATION
  Report Type: 
  Country: None (occurrence: None)
  Receive Date: 20111108
  Receipt Date: 20111031
  Transmission Date: 20120403
  Serious: Yes (Other)
  Sender: FDA-Public Use
  Company Number: CHPA2011US15216

PATIENT
  Age: 74 Year
  Sex: Female

DRUGS (8)
  1. PLAVIX [Suspect]
     Indication: CARDIAC DISORDER
     Dosage: UNK DF, UNK
     Route: 048
  2. GAS-X EXTRA STRENGTH [Suspect]
     Indication: ABDOMINAL DISTENSION
  3. LISINOPRIL [Suspect]
     Indication: BLOOD PRESSURE
     Dosage: UNK DF, UNK
     Route: 048
  4. CLONIDINE [Suspect]
     Dosage: UNK DF, UNK
     Route: 048
  5. GAS-X EXTRA STRENGTH [Suspect]
     Indication: FLATULENCE
     Dosage: 3 CAPSULES THROUGHOUT DAY PRN
     Route: 048
  6. METOPROLOL [Suspect]
     Indication: BLOOD PRESSURE
     Dosage: UNK DF, UNK
     Route: 048
  7. DIFLUCAN [Concomitant]
     Dosage: UNK DF, UNK
     Route: 048
  8. DIOVAN [Suspect]
     Indication: BLOOD PRESSURE
     Dosage: 80 MG, BID
     Route: 048

REACTIONS (4)
  - COUGH [None]
  - BLOOD PRESSURE DIASTOLIC INCREASED [None]
  - CONSTIPATION [None]
  - ABDOMINAL PAIN UPPER [None]
